FAERS Safety Report 11572552 (Version 2)
Quarter: 2015Q4

REPORT INFORMATION
  Report Type: Spontaneous
  Country: FR (occurrence: FR)
  Receive Date: 20150929
  Receipt Date: 20151103
  Transmission Date: 20160304
  Serious: Yes (Death, Life-Threatening, Hospitalization, Other)
  Sender: FDA-Public Use
  Company Number: FR-BRISTOL-MYERS SQUIBB COMPANY-BMS-2015-065628

PATIENT
  Age: 74 Year
  Sex: Male

DRUGS (1)
  1. NIVOLUMAB BMS [Suspect]
     Active Substance: NIVOLUMAB
     Indication: BRONCHIAL CARCINOMA
     Dosage: UNK
     Route: 065
     Dates: start: 201509

REACTIONS (3)
  - Pleural effusion [Unknown]
  - Sepsis [Fatal]
  - Citrobacter infection [Fatal]

NARRATIVE: CASE EVENT DATE: 20150910
